FAERS Safety Report 25072344 (Version 1)
Quarter: 2025Q1

REPORT INFORMATION
  Report Type: Other
  Country: IT (occurrence: IT)
  Receive Date: 20250313
  Receipt Date: 20250313
  Transmission Date: 20250408
  Serious: Yes (Other)
  Sender: Alora Pharma
  Company Number: IT-VERTICAL PHARMACEUTICALS-2025ALO00099

PATIENT
  Age: 42 Year
  Sex: Male
  Weight: 80 kg

DRUGS (1)
  1. ESTRADIOL [Suspect]
     Active Substance: ESTRADIOL
     Indication: Gender dysphoria
     Dosage: SACHET DAILY (1 DOSAGE FORM,1 D)
     Route: 062
     Dates: start: 2022, end: 2023

REACTIONS (2)
  - Alopecia [None]
  - Product use in unapproved indication [Recovered/Resolved]

NARRATIVE: CASE EVENT DATE: 20220101
